FAERS Safety Report 8180151-9 (Version None)
Quarter: 2012Q1

REPORT INFORMATION
  Report Type: 
  Country: None (occurrence: None)
  Receive Date: 20120215
  Receipt Date: 20120210
  Transmission Date: 20120608
  Serious: Yes (Hospitalization)
  Sender: FDA-Public Use
  Company Number: 2012030698

PATIENT
  Age: 21 Year
  Sex: Female

DRUGS (3)
  1. PRIVIGEN [Suspect]
     Indication: THROMBOCYTOPENIA
     Dosage: 3 VIALS INTRAVENOUS (NOT OTHERWISE SPECIFIED) ; 1 VIAL
     Route: 042
     Dates: start: 20111126, end: 20111127
  2. PLATELETS [Concomitant]
  3. HUMAN BLOOD (PLATELETS, HUMAN BLOOD) [Concomitant]

REACTIONS (7)
  - LEUKOCYTOSIS [None]
  - C-REACTIVE PROTEIN INCREASED [None]
  - SEPTIC SHOCK [None]
  - HYPERTHERMIA [None]
  - CHILLS [None]
  - ALTERED STATE OF CONSCIOUSNESS [None]
  - ESCHERICHIA BACTERAEMIA [None]
